FAERS Safety Report 14670127 (Version 1)
Quarter: 2018Q1

REPORT INFORMATION
  Report Type: Spontaneous
  Country: CA (occurrence: CA)
  Receive Date: 20180322
  Receipt Date: 20180322
  Transmission Date: 20180509
  Serious: Yes (Other)
  Sender: FDA-Public Use
  Company Number: CA-BAYER-2018-051730

PATIENT
  Age: 27 Year
  Sex: Female
  Weight: 61.23 kg

DRUGS (3)
  1. MIRENA [Suspect]
     Active Substance: LEVONORGESTREL
     Indication: CONTRACEPTION
     Dosage: 20 MCG/24HR, CONT
     Route: 015
  2. CITALOPRAM [Concomitant]
     Active Substance: CITALOPRAM HYDROBROMIDE
  3. EFFEXOR XR [Concomitant]
     Active Substance: VENLAFAXINE HYDROCHLORIDE

REACTIONS (5)
  - Fatigue [Recovered/Resolved]
  - Panic attack [Recovered/Resolved]
  - Hypertrichosis [Recovered/Resolved]
  - Anxiety [Recovered/Resolved]
  - Depression [Recovered/Resolved]
